FAERS Safety Report 25570245 (Version 2)
Quarter: 2025Q3

REPORT INFORMATION
  Report Type: Spontaneous
  Country: US (occurrence: US)
  Receive Date: 20250717
  Receipt Date: 20250808
  Transmission Date: 20251020
  Serious: No
  Sender: AMGEN
  Company Number: US-AMGEN-USASP2025139521

PATIENT
  Age: 67 Year
  Sex: Female

DRUGS (1)
  1. REPATHA [Suspect]
     Active Substance: EVOLOCUMAB
     Indication: Coronary artery disease
     Dosage: 140 MILLIGRAM, Q2WK
     Route: 058

REACTIONS (10)
  - Injection site swelling [Recovering/Resolving]
  - Injection site pain [Recovering/Resolving]
  - Injection site haemorrhage [Recovering/Resolving]
  - Accidental exposure to product [Unknown]
  - Wrong technique in product usage process [Unknown]
  - Injury associated with device [Recovering/Resolving]
  - Injection site discomfort [Recovering/Resolving]
  - Visual impairment [Unknown]
  - Memory impairment [Unknown]
  - Product storage error [Unknown]

NARRATIVE: CASE EVENT DATE: 20250701
